FAERS Safety Report 4442243-7 (Version None)
Quarter: 2004Q3

REPORT INFORMATION
  Report Type: 
  Country: None (occurrence: None)
  Receive Date: 20040903
  Receipt Date: 20040719
  Transmission Date: 20050211
  Serious: Yes (Other)
  Sender: FDA-Public Use
  Company Number: 2004UW14860

PATIENT
  Age: 79 Year
  Sex: Female
  Weight: 107.9561 kg

DRUGS (3)
  1. CRESTOR [Suspect]
     Indication: HYPERCHOLESTEROLAEMIA
     Dates: start: 20040601
  2. GLUCOTROL [Concomitant]
  3. ACTOS [Concomitant]

REACTIONS (1)
  - CHEST DISCOMFORT [None]
